FAERS Safety Report 5865267-1 (Version None)
Quarter: 2008Q3

REPORT INFORMATION
  Report Type: 
  Country: None (occurrence: None)
  Receive Date: 20080829
  Receipt Date: 20080212
  Transmission Date: 20090109
  Serious: No
  Sender: FDA-Public Use
  Company Number: A0699066A

PATIENT
  Age: 63 Year
  Sex: Female

DRUGS (2)
  1. BECONASE [Suspect]
     Indication: MULTIPLE ALLERGIES
     Route: 045
  2. PRILOSEC [Concomitant]

REACTIONS (4)
  - INFLUENZA LIKE ILLNESS [None]
  - NASAL DISCOMFORT [None]
  - OVERDOSE [None]
  - PHARMACEUTICAL PRODUCT COMPLAINT [None]
